FAERS Safety Report 25223122 (Version 1)
Quarter: 2025Q2

REPORT INFORMATION
  Report Type: Spontaneous
  Country: CN (occurrence: CN)
  Receive Date: 20250422
  Receipt Date: 20250422
  Transmission Date: 20250717
  Serious: Yes (Other)
  Sender: FRESENIUS KABI
  Company Number: CN-FreseniusKabi-FK202505495

PATIENT
  Age: 58 Year
  Sex: Male
  Weight: 70 kg

DRUGS (5)
  1. PROPOFOL [Suspect]
     Active Substance: PROPOFOL
     Indication: Anaesthesia
     Dosage: FOA: PUMP INJECTION?THERAPY START TIME: 9:25?THERAPY END TIME: 10:10
     Route: 042
     Dates: start: 20250408, end: 20250408
  2. SUCCINYLATED GELATIN [Suspect]
     Active Substance: SUCCINYLATED GELATIN
     Indication: Blood volume expansion
     Dosage: FOA: INJECTION?FROM 9:12 TO 10:15
     Route: 041
     Dates: start: 20250408, end: 20250408
  3. SODIUM CHLORIDE [Concomitant]
     Active Substance: SODIUM CHLORIDE
     Indication: Foot fracture
  4. CEFAZOLIN SODIUM [Concomitant]
     Active Substance: CEFAZOLIN SODIUM
     Indication: Foot fracture
  5. NOREPINEPHRINE BITARTRATE [Concomitant]
     Active Substance: NOREPINEPHRINE BITARTRATE
     Indication: Foot fracture

REACTIONS (4)
  - Anaphylactic shock [Recovering/Resolving]
  - Restlessness [Recovering/Resolving]
  - Eyelid oedema [Recovering/Resolving]
  - Productive cough [Recovering/Resolving]

NARRATIVE: CASE EVENT DATE: 20250408
